FAERS Safety Report 13636386 (Version 1)
Quarter: 2017Q2

REPORT INFORMATION
  Report Type: Spontaneous
  Country: US (occurrence: US)
  Receive Date: 20170609
  Receipt Date: 20170609
  Transmission Date: 20170830
  Serious: No
  Sender: FDA-Public Use
  Company Number: None

PATIENT
  Sex: Female

DRUGS (2)
  1. KANNAWAY CBD OIL [Suspect]
     Active Substance: CANNABIDIOL
  2. KANNAWAY REVIVE SALVE [Suspect]
     Active Substance: CANNABIDIOL\CANNABIS SATIVA SEED OIL

REACTIONS (1)
  - Unevaluable event [None]
